FAERS Safety Report 26092460 (Version 2)
Quarter: 2025Q4

REPORT INFORMATION
  Report Type: Spontaneous
  Country: US (occurrence: US)
  Receive Date: 20251126
  Receipt Date: 20251222
  Transmission Date: 20260117
  Serious: Yes (Hospitalization)
  Sender: FENNEC PHARMACEUTICALS
  Company Number: US-FENNEC PHARMACEUTICALS, INC.-2025FEN00112

PATIENT
  Age: 54 Year
  Sex: Female

DRUGS (8)
  1. PEDMARK [Suspect]
     Active Substance: SODIUM THIOSULFATE
     Indication: Ototoxicity
     Dosage: CYCLE #1: 35 GRAMS OVER 45 MINUTES/3 VIALS PER INFUSION
     Route: 042
     Dates: start: 20251103, end: 20251103
  2. LORAZEPAM [Concomitant]
     Active Substance: LORAZEPAM
     Dosage: 0.5 MG ONE HOUR PRIOR TO PEDMARK
     Route: 048
  3. COMPAZINE [Concomitant]
     Active Substance: PROCHLORPERAZINE MALEATE
     Indication: Nausea
     Dosage: 10 MG, AS NEEDED
  4. HYDROMORPHONE [Concomitant]
     Active Substance: HYDROMORPHONE
     Indication: Pain
     Dosage: 2 MG, AS NEEDED
  5. ZOFRAN [Concomitant]
     Active Substance: ONDANSETRON HYDROCHLORIDE
     Indication: Nausea
     Dosage: 4 MG, 3X/DAY AS NEEDED
  6. DEXAMETHASONE [Concomitant]
     Active Substance: DEXAMETHASONE
     Dosage: 6 MG, 30 TO 60 MINUTES PRIOR TO PEDMARK
     Route: 042
  7. PROCHLORPERAZINE [Concomitant]
     Active Substance: PROCHLORPERAZINE
     Dosage: 10 MG, 30 - 60 MINUTES PRIOR TO PEDMARK
     Route: 042
  8. CLARITIN [Concomitant]
     Active Substance: LORATADINE
     Dosage: 10 MG, 30 - 60 MINUTES PRIOR TO PEDMARK
     Route: 048

REACTIONS (6)
  - Hospitalisation [Unknown]
  - Surgery [Unknown]
  - Blood glucose increased [Unknown]
  - Nausea [Recovered/Resolved]
  - Vomiting [Recovered/Resolved]
  - Off label use [Unknown]

NARRATIVE: CASE EVENT DATE: 20251101
